FAERS Safety Report 6362173-3 (Version None)
Quarter: 2009Q3

REPORT INFORMATION
  Report Type: 
  Country: None (occurrence: None)
  Receive Date: 20090918
  Receipt Date: 20090911
  Transmission Date: 20100115
  Serious: Yes (Other)
  Sender: FDA-Public Use
  Company Number: SE-BAXTER-2009BH010613

PATIENT
  Age: 85 Year
  Sex: Female

DRUGS (1)
  1. ENDOXAN BAXTER [Suspect]
     Indication: CHRONIC LYMPHOCYTIC LEUKAEMIA
     Route: 065
     Dates: end: 20090306

REACTIONS (2)
  - RETINAL VEIN THROMBOSIS [None]
  - VISUAL IMPAIRMENT [None]
